FAERS Safety Report 9290880 (Version 1)
Quarter: 2013Q2

REPORT INFORMATION
  Report Type: Report from Study
  Country: US (occurrence: US)
  Receive Date: 20130515
  Receipt Date: 20130515
  Transmission Date: 20140414
  Serious: Yes (Other)
  Sender: FDA-Public Use
  Company Number: US-BAYER-2013-057750

PATIENT
  Age: 71 Year
  Sex: Female

DRUGS (1)
  1. STIVARGA [Suspect]
     Indication: COLON CANCER
     Dosage: 160 MG, 4 TABLETS DAILY
     Route: 048
     Dates: start: 20130320, end: 20130401

REACTIONS (2)
  - Aphagia [Recovered/Resolved]
  - Feeling abnormal [Recovered/Resolved]
